FAERS Safety Report 7116101-3 (Version None)
Quarter: 2010Q4

REPORT INFORMATION
  Report Type: 
  Country: None (occurrence: None)
  Receive Date: 20101122
  Receipt Date: 20101108
  Transmission Date: 20110411
  Serious: Yes (Other)
  Sender: FDA-Public Use
  Company Number: PHHY2010BR76289

PATIENT
  Sex: Male

DRUGS (5)
  1. AMLODIPINE BESYLATE AND VALSARTAN [Suspect]
     Dosage: ONCE DAILY
     Route: 048
  2. ANCORON [Concomitant]
     Indication: CEREBRAL ARTERY EMBOLISM
     Dosage: 1 TABLET DAILY
     Route: 048
  3. DIGOXIN [Concomitant]
     Indication: CEREBRAL ARTERY EMBOLISM
     Dosage: 1 TABLET DAILY
     Route: 048
  4. PAROXETINE HCL [Concomitant]
     Indication: DEPRESSION
     Dosage: 1 TABLET DAILY
     Route: 048
  5. MARCUMAR [Concomitant]
     Indication: CEREBRAL ARTERY EMBOLISM
     Route: 048

REACTIONS (2)
  - MUSCLE SPASMS [None]
  - PARKINSON'S DISEASE [None]
